FAERS Safety Report 15479854 (Version 1)
Quarter: 2018Q4

REPORT INFORMATION
  Report Type: Spontaneous
  Country: US (occurrence: US)
  Receive Date: 20181009
  Receipt Date: 20181009
  Transmission Date: 20190205
  Serious: No
  Sender: FDA-Public Use
  Company Number: US-ACTELION-A-NJ2018-179667

PATIENT
  Age: 34 Year
  Sex: Male

DRUGS (20)
  1. METOPROLOL. [Concomitant]
     Active Substance: METOPROLOL
  2. PULMICORT TURBUHALER [Concomitant]
     Active Substance: BUDESONIDE
  3. ZANTAC [Concomitant]
     Active Substance: RANITIDINE HYDROCHLORIDE
  4. MELOXICAM. [Concomitant]
     Active Substance: MELOXICAM
  5. METFORMIN [Concomitant]
     Active Substance: METFORMIN HYDROCHLORIDE
  6. METOLAZONE. [Concomitant]
     Active Substance: METOLAZONE
  7. POTASSIUM CHLORIDE. [Concomitant]
     Active Substance: POTASSIUM CHLORIDE
  8. REVATIO [Concomitant]
     Active Substance: SILDENAFIL CITRATE
  9. ALENDRONATE [Concomitant]
     Active Substance: ALENDRONATE SODIUM
  10. MONTELUKAST [Concomitant]
     Active Substance: MONTELUKAST SODIUM
  11. NOVOLOG [Concomitant]
     Active Substance: INSULIN ASPART
  12. VENTOLIN [Concomitant]
     Active Substance: ALBUTEROL SULFATE
  13. TRACLEER [Suspect]
     Active Substance: BOSENTAN
     Indication: PULMONARY ARTERIAL HYPERTENSION
     Dosage: 125 MG, Q12HRS
     Route: 048
     Dates: start: 20171228
  14. TRAMADOL. [Concomitant]
     Active Substance: TRAMADOL
  15. GABAPENTIN. [Concomitant]
     Active Substance: GABAPENTIN
  16. PREDNISONE. [Concomitant]
     Active Substance: PREDNISONE
  17. DESLORATADINE. [Concomitant]
     Active Substance: DESLORATADINE
  18. FUROSEMIDE. [Concomitant]
     Active Substance: FUROSEMIDE
  19. LEVALBUTEROL. [Concomitant]
     Active Substance: LEVALBUTEROL
  20. LEVEMIR [Concomitant]
     Active Substance: INSULIN DETEMIR

REACTIONS (1)
  - Product dispensing error [Unknown]

NARRATIVE: CASE EVENT DATE: 20180927
